FAERS Safety Report 8872563 (Version 1)
Quarter: 2012Q4

REPORT INFORMATION
  Report Type: 
  Country: US (occurrence: US)
  Receive Date: 20121026
  Receipt Date: 20121026
  Transmission Date: 20130627
  Serious: No
  Sender: FDA-Public Use
  Company Number: US-AMGEN-USASP2012051425

PATIENT
  Age: 53 Year
  Sex: Male

DRUGS (11)
  1. ENBREL [Suspect]
     Indication: PRODUCT USED FOR UNKNOWN INDICATION
     Dosage: 50 mg, qwk
     Route: 058
  2. CALTRATE +D                        /01204201/ [Concomitant]
     Dosage: 600 UNK, UNK
     Route: 048
  3. AMLODIPINE [Concomitant]
     Dosage: 2.5 mg, UNK
     Route: 048
  4. LISINOPRIL + HIDROCLOROTIAZIDA [Concomitant]
     Dosage: 10-12.5
     Route: 048
  5. METFORMIN [Concomitant]
     Dosage: 500 mg, UNK
     Route: 048
  6. ETODOLAC [Concomitant]
     Dosage: 500 mg, UNK
     Route: 048
  7. ATORVASTATIN [Concomitant]
     Dosage: 10 mg, UNK
     Route: 048
  8. SULFASALAZIN [Concomitant]
     Dosage: 500 mg, UNK
     Route: 048
  9. VITAMIN D3 [Concomitant]
     Dosage: 1000 UNK, UNK
     Route: 048
  10. FISH OIL [Concomitant]
     Dosage: 1000 mg, UNK
     Route: 048
  11. LEVOXYL [Concomitant]
     Dosage: 88 mug, UNK
     Route: 048

REACTIONS (1)
  - Nasopharyngitis [Unknown]
